FAERS Safety Report 9596561 (Version 2)
Quarter: 2013Q4

REPORT INFORMATION
  Report Type: Report from Study
  Country: GR (occurrence: GR)
  Receive Date: 20131004
  Receipt Date: 20131004
  Transmission Date: 20140711
  Serious: Yes (Hospitalization)
  Sender: FDA-Public Use
  Company Number: PHHY2013GR108159

PATIENT
  Sex: Female

DRUGS (1)
  1. EXELON PATCH [Suspect]
     Indication: DEMENTIA ALZHEIMER^S TYPE
     Dosage: 1 DF/24 HOURS
     Route: 062

REACTIONS (5)
  - Palpitations [Unknown]
  - Psychotic disorder [Unknown]
  - Restlessness [Unknown]
  - Nervousness [Unknown]
  - Drug administration error [Unknown]
